FAERS Safety Report 24342612 (Version 2)
Quarter: 2025Q1

REPORT INFORMATION
  Report Type: Spontaneous
  Country: PT (occurrence: PT)
  Receive Date: 20240920
  Receipt Date: 20250212
  Transmission Date: 20250409
  Serious: Yes (Death, Other)
  Sender: SANOFI AVENTIS
  Company Number: PT-OPELLA-2024OHG031921

PATIENT

DRUGS (69)
  1. TAMSULOSIN HYDROCHLORIDE [Interacting]
     Active Substance: TAMSULOSIN HYDROCHLORIDE
     Indication: Product used for unknown indication
  2. SODIUM PICOSULFATE [Interacting]
     Active Substance: SODIUM PICOSULFATE
     Indication: Product used for unknown indication
  3. XYZAL [Suspect]
     Active Substance: LEVOCETIRIZINE DIHYDROCHLORIDE
     Indication: Product used for unknown indication
  4. NORFLOXACIN [Suspect]
     Active Substance: NORFLOXACIN
  5. DOCETAXEL [Suspect]
     Active Substance: DOCETAXEL
  6. DILTIAZEM HYDROCHLORIDE [Suspect]
     Active Substance: DILTIAZEM HYDROCHLORIDE
  7. SERTRALINE [Suspect]
     Active Substance: SERTRALINE HYDROCHLORIDE
  8. FLUOXETINE HYDROCHLORIDE [Suspect]
     Active Substance: FLUOXETINE HYDROCHLORIDE
  9. POTASSIUM IODIDE [Suspect]
     Active Substance: POTASSIUM IODIDE
  10. CHOLECALCIFEROL [Suspect]
     Active Substance: CHOLECALCIFEROL
  11. ASPIRIN [Suspect]
     Active Substance: ASPIRIN
  12. MIRTAZAPINE [Suspect]
     Active Substance: MIRTAZAPINE
  13. ATORVASTATIN CALCIUM [Suspect]
     Active Substance: ATORVASTATIN CALCIUM
  14. SIMVASTATIN [Suspect]
     Active Substance: SIMVASTATIN
  15. DONEPEZIL HYDROCHLORIDE [Suspect]
     Active Substance: DONEPEZIL HYDROCHLORIDE
  16. TRAMADOL HYDROCHLORIDE [Suspect]
     Active Substance: TRAMADOL HYDROCHLORIDE
  17. PRAVASTATIN SODIUM [Suspect]
     Active Substance: PRAVASTATIN SODIUM
  18. TELMISARTAN [Suspect]
     Active Substance: TELMISARTAN
  19. HYDROCHLOROTHIAZIDE [Suspect]
     Active Substance: HYDROCHLOROTHIAZIDE
  20. NITROGLYCERIN [Suspect]
     Active Substance: NITROGLYCERIN
  21. DOMPERIDONE [Suspect]
     Active Substance: DOMPERIDONE
  22. PROPRANOLOL HYDROCHLORIDE [Suspect]
     Active Substance: PROPRANOLOL HYDROCHLORIDE
  23. PENTOXIFYLLINE [Suspect]
     Active Substance: PENTOXIFYLLINE
  24. BISOPROLOL FUMARATE [Suspect]
     Active Substance: BISOPROLOL FUMARATE
  25. VERAPAMIL HYDROCHLORIDE [Suspect]
     Active Substance: VERAPAMIL HYDROCHLORIDE
  26. ENOXAPARIN SODIUM [Suspect]
     Active Substance: ENOXAPARIN SODIUM
  27. ESOMEPRAZOLE [Suspect]
     Active Substance: ESOMEPRAZOLE
  28. ESCITALOPRAM OXALATE [Suspect]
     Active Substance: ESCITALOPRAM OXALATE
  29. VENLAFAXINE HYDROCHLORIDE [Suspect]
     Active Substance: VENLAFAXINE HYDROCHLORIDE
  30. ACETAMINOPHEN [Suspect]
     Active Substance: ACETAMINOPHEN
  31. PREGABALIN [Suspect]
     Active Substance: PREGABALIN
  32. ETANERCEPT [Suspect]
     Active Substance: ETANERCEPT
     Route: 065
  33. FLUVASTATIN [Suspect]
     Active Substance: FLUVASTATIN SODIUM
     Route: 065
  34. ZOLEDRONIC ACID [Suspect]
     Active Substance: ZOLEDRONIC ACID
     Route: 065
  35. ADALIMUMAB [Suspect]
     Active Substance: ADALIMUMAB
     Route: 065
  36. AGOMELATINE [Suspect]
     Active Substance: AGOMELATINE
     Route: 065
  37. VORTIOXETINE [Suspect]
     Active Substance: VORTIOXETINE
     Route: 065
  38. SOFOSBUVIR [Suspect]
     Active Substance: SOFOSBUVIR
     Route: 065
  39. IBANDRONIC ACID [Suspect]
     Active Substance: IBANDRONIC ACID
     Route: 065
  40. EZETIMIBE [Suspect]
     Active Substance: EZETIMIBE
  41. BUPRENORPHINE [Suspect]
     Active Substance: BUPRENORPHINE
  42. FENOFIBRATE [Suspect]
     Active Substance: FENOFIBRATE
     Route: 065
  43. IMATINIB [Suspect]
     Active Substance: IMATINIB
     Route: 065
  44. ESCHERICHIA COLI [Suspect]
     Active Substance: ESCHERICHIA COLI
     Route: 065
  45. LEDIPASVIR [Suspect]
     Active Substance: LEDIPASVIR
     Route: 065
  46. PENTAZOCINE [Suspect]
     Active Substance: PENTAZOCINE
     Route: 065
  47. DUTASTERIDE [Suspect]
     Active Substance: DUTASTERIDE
     Route: 065
  48. GINKGO [Suspect]
     Active Substance: GINKGO
     Route: 065
  49. CILAZAPRIL ANHYDROUS [Suspect]
     Active Substance: CILAZAPRIL ANHYDROUS
  50. BRINZOLAMIDE [Suspect]
     Active Substance: BRINZOLAMIDE
     Route: 065
  51. INDOMETHACIN [Suspect]
     Active Substance: INDOMETHACIN
  52. MYCOPHENOLIC ACID [Suspect]
     Active Substance: MYCOPHENOLIC ACID
  53. HUMAN IMMUNOGLOBULIN G [Suspect]
     Active Substance: HUMAN IMMUNOGLOBULIN G
  54. NILOTINIB [Suspect]
     Active Substance: NILOTINIB
     Route: 065
  55. HYDROMORPHONE HYDROCHLORIDE [Suspect]
     Active Substance: HYDROMORPHONE HYDROCHLORIDE
  56. TOCILIZUMAB [Suspect]
     Active Substance: TOCILIZUMAB
     Route: 065
  57. ACECLOFENAC [Suspect]
     Active Substance: ACECLOFENAC
     Route: 065
  58. EXEMESTANE [Suspect]
     Active Substance: EXEMESTANE
     Route: 065
  59. RIBAVIRIN [Suspect]
     Active Substance: RIBAVIRIN
     Route: 065
  60. GLUCOSAMINE [Suspect]
     Active Substance: GLUCOSAMINE
  61. ANASTROZOLE [Suspect]
     Active Substance: ANASTROZOLE
  62. CODEINE SULFATE [Suspect]
     Active Substance: CODEINE SULFATE
  63. LETROZOLE [Suspect]
     Active Substance: LETROZOLE
  64. ALENDRONIC ACID [Suspect]
     Active Substance: ALENDRONIC ACID
     Route: 065
  65. CODEINE [Suspect]
     Active Substance: CODEINE
     Route: 065
  66. PITAVASTATIN [Suspect]
     Active Substance: PITAVASTATIN
     Route: 065
  67. NIMESULIDE [Suspect]
     Active Substance: NIMESULIDE
     Route: 065
  68. CELECOXIB [Suspect]
     Active Substance: CELECOXIB
     Route: 065
  69. ALISKIREN [Suspect]
     Active Substance: ALISKIREN
     Route: 065

REACTIONS (9)
  - Myalgia [Fatal]
  - Fall [Fatal]
  - Head discomfort [Fatal]
  - Dizziness [Fatal]
  - Drug interaction [Fatal]
  - Pruritus [Fatal]
  - Somnolence [Fatal]
  - Chills [Fatal]
  - Photophobia [Fatal]
